FAERS Safety Report 8179750-X (Version None)
Quarter: 2012Q1

REPORT INFORMATION
  Report Type: 
  Country: None (occurrence: None)
  Receive Date: 20120302
  Receipt Date: 20120223
  Transmission Date: 20120608
  Serious: Yes (Hospitalization)
  Sender: FDA-Public Use
  Company Number: US-BAYER-2011-085605

PATIENT
  Age: 34 Year
  Sex: Female
  Weight: 57.596 kg

DRUGS (1)
  1. YASMIN [Suspect]
     Dosage: UNK
     Dates: start: 20010101, end: 20030101

REACTIONS (7)
  - ANXIETY [None]
  - PSYCHOLOGICAL TRAUMA [None]
  - PAIN [None]
  - INJURY [None]
  - INTRACRANIAL ANEURYSM [None]
  - THROMBOSIS [None]
  - EMOTIONAL DISTRESS [None]
